FAERS Safety Report 9172386 (Version 1)
Quarter: 2013Q1

REPORT INFORMATION
  Report Type: Spontaneous
  Country: GB (occurrence: GB)
  Receive Date: 20130319
  Receipt Date: 20130319
  Transmission Date: 20140127
  Serious: Yes (Other)
  Sender: FDA-Public Use
  Company Number: GB-ALLERGAN-1303730US

PATIENT
  Sex: Female

DRUGS (1)
  1. OZURDEX [Suspect]
     Indication: RETINAL VEIN OCCLUSION
     Dosage: 0.7 MG, SINGLE
     Route: 031

REACTIONS (3)
  - Corneal opacity [Recovered/Resolved]
  - Iridocyclitis [Recovered/Resolved]
  - Vitreous opacities [Recovered/Resolved]
